FAERS Safety Report 7657462-6 (Version None)
Quarter: 2011Q3

REPORT INFORMATION
  Report Type: 
  Country: None (occurrence: None)
  Receive Date: 20110804
  Receipt Date: 20110726
  Transmission Date: 20111222
  Serious: Yes (Other)
  Sender: FDA-Public Use
  Company Number: US-ASTRAZENECA-2011SE31487

PATIENT
  Age: 83 Year
  Sex: Female

DRUGS (4)
  1. TOPROL-XL [Suspect]
     Indication: HYPERTENSION
     Route: 048
  2. NEXIUM [Suspect]
     Indication: GASTROOESOPHAGEAL REFLUX DISEASE
     Dosage: ONCE PER DAY
     Route: 048
  3. NEXIUM [Suspect]
     Dosage: TWO PER DAY
     Route: 048
  4. CRESTOR [Suspect]
     Route: 048

REACTIONS (3)
  - ABDOMINAL DISCOMFORT [None]
  - LYMPHOCYTIC LEUKAEMIA [None]
  - INTENTIONAL DRUG MISUSE [None]
